FAERS Safety Report 19190215 (Version 3)
Quarter: 2023Q1

REPORT INFORMATION
  Report Type: Spontaneous
  Country: JP (occurrence: JP)
  Receive Date: 20210428
  Receipt Date: 20230322
  Transmission Date: 20230417
  Serious: Yes (Hospitalization, Other)
  Sender: FDA-Public Use
  Company Number: JP-OTSUKA-2020_014436

PATIENT
  Age: 14 Year
  Sex: Male
  Weight: 64 kg

DRUGS (4)
  1. ABILIFY [Suspect]
     Active Substance: ARIPIPRAZOLE
     Indication: Autism spectrum disorder
     Dosage: 1 MG, QD
     Route: 048
     Dates: start: 20190831
  2. ABILIFY [Suspect]
     Active Substance: ARIPIPRAZOLE
     Indication: Irritability
  3. ASPIRIN [Concomitant]
     Active Substance: ASPIRIN
     Indication: Cardiac disorder
     Dosage: 100/DAY, FOR 5 YEARS OR MORE
     Route: 048
  4. ASPIRIN [Concomitant]
     Active Substance: ASPIRIN
     Indication: Prosthetic vessel implantation

REACTIONS (4)
  - Bacteraemia [Unknown]
  - Chest wall abscess [Unknown]
  - Type 2 diabetes mellitus [Recovered/Resolved]
  - Pyrexia [Unknown]

NARRATIVE: CASE EVENT DATE: 20200512
